FAERS Safety Report 8199970-8 (Version None)
Quarter: 2012Q1

REPORT INFORMATION
  Report Type: 
  Country: None (occurrence: None)
  Receive Date: 20120312
  Receipt Date: 20120308
  Transmission Date: 20120608
  Serious: No
  Sender: FDA-Public Use
  Company Number: US-PFIZER INC-2012062691

PATIENT
  Sex: Male
  Weight: 97.506 kg

DRUGS (8)
  1. METFORMIN [Concomitant]
     Dosage: UNK
  2. TERAZOSIN [Concomitant]
     Dosage: UNK
  3. ACCUPRIL [Concomitant]
     Dosage: UNK
  4. ACETYLSALICYLIC ACID [Concomitant]
     Dosage: UNK
  5. CHANTIX [Suspect]
     Indication: SMOKING CESSATION THERAPY
     Dosage: 0.5 MG, 1X/DAY
     Route: 048
     Dates: start: 20120201, end: 20120201
  6. VIAGRA [Concomitant]
     Dosage: UNK
  7. CHANTIX [Suspect]
     Dosage: UNK
     Dates: start: 20120201
  8. GLIPIZIDE [Concomitant]
     Dosage: UNK

REACTIONS (2)
  - RASH MACULAR [None]
  - RASH PRURITIC [None]
